FAERS Safety Report 16205596 (Version 1)
Quarter: 2019Q2

REPORT INFORMATION
  Report Type: Spontaneous
  Country: NL (occurrence: NL)
  Receive Date: 20190417
  Receipt Date: 20190417
  Transmission Date: 20190711
  Serious: Yes (Other)
  Sender: FDA-Public Use
  Company Number: NL-ACCORD-121799

PATIENT
  Age: 76 Year
  Sex: Male
  Weight: 118 kg

DRUGS (6)
  1. VENTOLIN [Concomitant]
     Active Substance: ALBUTEROL SULFATE
     Dosage: STRENGTH 200MCG,3DD1
  2. LOSARTAN POTASSIUM SANDOZ [Concomitant]
     Active Substance: LOSARTAN POTASSIUM
     Dosage: STRENGTH 50 MG,1DD1
  3. FLIXONASE [Concomitant]
     Active Substance: FLUTICASONE PROPIONATE
     Dosage: STRENGTH 50MCG,2DD1
  4. AMLODIPINE [Suspect]
     Active Substance: AMLODIPINE BESYLATE
     Indication: HYPERTENSION
     Dosage: STRENGTH 10 MG,1D 1T
     Dates: start: 20180902, end: 20181009
  5. APIDRA SOLOSTAR [Concomitant]
     Active Substance: INSULIN GLULISINE
  6. FLIXOTIDE DISKUS [Concomitant]
     Active Substance: FLUTICASONE PROPIONATE
     Dosage: STRENGTH 100 MCG,2DD1

REACTIONS (2)
  - Blood glucose increased [Recovered/Resolved]
  - Diabetes mellitus inadequate control [Recovered/Resolved]

NARRATIVE: CASE EVENT DATE: 20181004
